FAERS Safety Report 10031438 (Version 3)
Quarter: 2014Q2

REPORT INFORMATION
  Report Type: Report from Study
  Country: JP (occurrence: JP)
  Receive Date: 20140324
  Receipt Date: 20140416
  Transmission Date: 20141212
  Serious: Yes (Hospitalization)
  Sender: FDA-Public Use
  Company Number: JP-ROCHE-1364998

PATIENT
  Age: 20 Year
  Sex: Female
  Weight: 48.6 kg

DRUGS (9)
  1. TRASTUZUMAB EMTANSINE [Suspect]
     Indication: BREAST CANCER METASTATIC
     Route: 042
     Dates: start: 20140305
  2. LOXOPROFEN [Suspect]
     Indication: PYREXIA
     Dosage: FOR TON
     Route: 048
     Dates: start: 20140306
  3. ISODINE [Concomitant]
     Indication: PARONYCHIA
     Dosage: PROPER PROPER QUANTITY
     Route: 003
     Dates: start: 20130531
  4. ANTEBATE [Concomitant]
     Indication: PARONYCHIA
     Dosage: PROPER PROPER QUANTITY
     Route: 003
     Dates: start: 20130531
  5. PURSENNID [Concomitant]
     Indication: CONSTIPATION
     Dosage: SINGLE USE
     Route: 048
     Dates: start: 20120215
  6. PYDOXAL [Concomitant]
     Indication: NEUROPATHY PERIPHERAL
     Route: 048
     Dates: start: 20130213, end: 20140309
  7. KENALOG (JAPAN) [Concomitant]
     Indication: STOMATITIS
     Dosage: PROPER PROPER QUANTITY
     Route: 049
     Dates: start: 20130215
  8. INTAL [Concomitant]
     Indication: CONJUNCTIVITIS ALLERGIC
     Dosage: BEGINNING OF DOSAGE DAY: PROPER PROPER QUANTITY BEFORE BEGINNING OF ?DOSAGE OF INVESTIGATIONAL AGEN
     Route: 047
  9. BECLOMETHASONE DIPROPIONATE [Concomitant]
     Indication: RHINITIS ALLERGIC
     Dosage: DRUG REPORTED AS : ALDECIN-AQ
     Route: 045

REACTIONS (1)
  - Duodenal ulcer [Recovered/Resolved]
